FAERS Safety Report 21646167 (Version 1)
Quarter: 2022Q4

REPORT INFORMATION
  Report Type: Report from Study
  Country: US (occurrence: US)
  Receive Date: 20221126
  Receipt Date: 20221126
  Transmission Date: 20230113
  Serious: Yes (Hospitalization)
  Sender: FDA-Public Use
  Company Number: US-ABBVIE-4214474

PATIENT
  Age: 0 Year
  Sex: Male
  Weight: 2.27 kg

DRUGS (1)
  1. HUMIRA [Suspect]
     Active Substance: ADALIMUMAB
     Indication: Product used for unknown indication
     Route: 064

REACTIONS (5)
  - Temperature regulation disorder [Unknown]
  - Exposure via breast milk [Unknown]
  - Premature delivery [Unknown]
  - COVID-19 [Recovered/Resolved]
  - Foetal exposure during pregnancy [Unknown]

NARRATIVE: CASE EVENT DATE: 20211213
